FAERS Safety Report 21449905 (Version 1)
Quarter: 2022Q4

REPORT INFORMATION
  Report Type: Report from Study
  Country: CZ (occurrence: None)
  Receive Date: 20221013
  Receipt Date: 20221013
  Transmission Date: 20230113
  Serious: Yes (Hospitalization)
  Sender: FDA-Public Use
  Company Number: 2022A310681

PATIENT
  Age: 71 Year
  Sex: Female
  Weight: 89 kg

DRUGS (22)
  1. OLAPARIB [Suspect]
     Active Substance: OLAPARIB
     Indication: Ovarian epithelial cancer
     Dosage: UNK
     Route: 048
     Dates: start: 20211013, end: 20220826
  2. PEMBROLIZUMAB [Suspect]
     Active Substance: PEMBROLIZUMAB
     Indication: Ovarian epithelial cancer
     Dosage: UNK
     Route: 042
     Dates: start: 20210203, end: 20220729
  3. PEMBROLIZUMAB [Suspect]
     Active Substance: PEMBROLIZUMAB
     Indication: Ovarian epithelial cancer
     Dosage: UNK
     Route: 042
     Dates: start: 20220817, end: 20220817
  4. PACLITAXEL [Concomitant]
     Active Substance: PACLITAXEL
     Indication: Ovarian epithelial cancer
     Route: 042
     Dates: start: 20210113, end: 20210616
  5. PACLITAXEL [Concomitant]
     Active Substance: PACLITAXEL
     Indication: Ovarian epithelial cancer
     Route: 042
     Dates: start: 20210714, end: 20210714
  6. CARBOPLATIN [Concomitant]
     Active Substance: CARBOPLATIN
     Indication: Ovarian epithelial cancer
     Route: 042
     Dates: start: 20210113, end: 20210616
  7. CARBOPLATIN [Concomitant]
     Active Substance: CARBOPLATIN
     Indication: Ovarian epithelial cancer
     Route: 042
     Dates: start: 20210714, end: 20210714
  8. AMLODIPINE BESYLATE [Concomitant]
     Active Substance: AMLODIPINE BESYLATE
     Indication: Hypertension
     Dosage: [1] 5 MG DAILY, FREQ: QD
     Route: 048
     Dates: start: 20200101
  9. RILMENIDINE [Concomitant]
     Active Substance: RILMENIDINE
     Indication: Hypertension
     Dosage: [2] 1 MG DAILY, FREQ: QD
     Route: 048
     Dates: start: 20100101
  10. ATORVASTATIN CALCIUM [Concomitant]
     Active Substance: ATORVASTATIN CALCIUM
     Dosage: [3] 20 MG DAILY, FREQ: QD
     Route: 048
     Dates: start: 20100101
  11. AMLODIPINE BESYLATE\INDAPAMIDE\PERINDOPRIL ARGININE [Concomitant]
     Active Substance: AMLODIPINE BESYLATE\INDAPAMIDE\PERINDOPRIL ARGININE
     Indication: Hypertension
     Dosage: [4] 5 MG DAILY, FREQ: QD
     Route: 048
     Dates: start: 20200101
  12. GRANISETRON HYDROCHLORIDE [Concomitant]
     Active Substance: GRANISETRON HYDROCHLORIDE
     Indication: Prophylaxis of nausea and vomiting
     Dosage: [5] 2 MG, PRN
     Route: 048
     Dates: start: 20210113
  13. METOCLOPRAMIDE HYDROCHLORIDE [Concomitant]
     Active Substance: METOCLOPRAMIDE HYDROCHLORIDE
     Indication: Prophylaxis of nausea and vomiting
     Dosage: [6] 10 MG DAILY, PRN
     Route: 048
     Dates: start: 20210113
  14. OMEPRAZOLE [Concomitant]
     Active Substance: OMEPRAZOLE
     Indication: Prophylaxis
     Dosage: [7] 20 MG DAILY, FREQ: QD
     Route: 048
     Dates: start: 20210113
  15. CETIRIZINE HYDROCHLORIDE [Concomitant]
     Active Substance: CETIRIZINE HYDROCHLORIDE
     Indication: Allergy prophylaxis
     Dosage: [8] 10 MG, PRN
     Route: 048
     Dates: start: 20210114
  16. MAGNESIUM CARBONATE\MAGNESIUM OXIDE [Concomitant]
     Active Substance: MAGNESIUM CARBONATE\MAGNESIUM OXIDE
     Dosage: [23] 1 BAG DAILY, FREQ: QD
     Route: 048
     Dates: start: 20210203
  17. NADROPARIN CALCIUM [Concomitant]
     Active Substance: NADROPARIN CALCIUM
     Indication: Thrombosis prophylaxis
     Dosage: [29] 0.4 ML DAILY, FREQ: QD
     Route: 058
     Dates: start: 20210308
  18. IRON POLYMALTOSE [Concomitant]
     Active Substance: IRON POLYMALTOSE
     Indication: Anaemia
     Dosage: [46] 200 MG DAILY, FREQ: BID
     Route: 048
     Dates: start: 20210714
  19. TORECAN [Concomitant]
     Active Substance: THIETHYLPERAZINE MALATE
     Indication: Nausea
     Dosage: [51] 6.5 MG, PRN
     Route: 048
     Dates: start: 20220809
  20. POTASSIUM CHLORIDE [Concomitant]
     Active Substance: POTASSIUM CHLORIDE
     Indication: Hypokalaemia
     Dosage: [52] 3 G DAILY, FREQ: TID
     Route: 048
     Dates: start: 20220817
  21. ELECTROLYTES NOS [Concomitant]
     Active Substance: ELECTROLYTES NOS
     Dosage: [53] 500 ML DAILY, FREQ: ONCE500.0ML ONCE/SINGLE ADMINISTRATION
     Route: 042
     Dates: start: 20220817, end: 20220817
  22. CARBOHYDRATES\FATTY ACIDS\MINERALS\PROTEIN\VITAMINS [Concomitant]
     Active Substance: CARBOHYDRATES\FATTY ACIDS\MINERALS\PROTEIN\VITAMINS
     Dosage: [54] 2 VIAL DAILY, FREQ: BID
     Route: 048
     Dates: start: 20220817

REACTIONS (1)
  - Malignant neoplasm progression [Recovered/Resolved]

NARRATIVE: CASE EVENT DATE: 20220828
